FAERS Safety Report 19398475 (Version 1)
Quarter: 2021Q2

REPORT INFORMATION
  Report Type: Spontaneous
  Country: US (occurrence: US)
  Receive Date: 20210609
  Receipt Date: 20210609
  Transmission Date: 20210717
  Serious: Yes (Other)
  Sender: FDA-Public Use
  Company Number: None

PATIENT
  Age: 53 Year
  Sex: Female
  Weight: 71.1 kg

DRUGS (1)
  1. ENTYVIO [Suspect]
     Active Substance: VEDOLIZUMAB
     Indication: CROHN^S DISEASE
     Dosage: ?          OTHER FREQUENCY:WK 0, 2, 6;?
     Route: 042
     Dates: start: 20210427, end: 20210608

REACTIONS (4)
  - Flank pain [None]
  - Somnolence [None]
  - Infusion related reaction [None]
  - Dysstasia [None]

NARRATIVE: CASE EVENT DATE: 20210608
